FAERS Safety Report 18475658 (Version 1)
Quarter: 2020Q4

REPORT INFORMATION
  Report Type: Spontaneous
  Country: FR (occurrence: FR)
  Receive Date: 20201107
  Receipt Date: 20201107
  Transmission Date: 20210114
  Serious: Yes (Life-Threatening, Other)
  Sender: FDA-Public Use
  Company Number: FR-SUN PHARMACEUTICAL INDUSTRIES LTD-2020RR-266743

PATIENT
  Age: 67 Year
  Sex: Female
  Weight: 88 kg

DRUGS (9)
  1. LYRICA [Concomitant]
     Active Substance: PREGABALIN
     Indication: PRODUCT USED FOR UNKNOWN INDICATION
     Dosage: 700 MILLIGRAMS, IN TOTAL
     Route: 048
     Dates: start: 20200817, end: 20200817
  2. MIANSERINE (CHLORHYDRATE DE) [Concomitant]
     Active Substance: MIANSERIN HYDROCHLORIDE
     Indication: PRODUCT USED FOR UNKNOWN INDICATION
     Dosage: 70 MILLIGRAMS. IN TOTAL
     Route: 048
     Dates: start: 20200817, end: 20200817
  3. DULOXETINE (CHLORHYDRATE DE) [Concomitant]
     Active Substance: DULOXETINE
     Indication: PRODUCT USED FOR UNKNOWN INDICATION
     Dosage: 420 MILLIGRAMS, IN TOTAL
     Route: 048
     Dates: start: 20200817, end: 20200817
  4. VALIUM [Concomitant]
     Active Substance: DIAZEPAM
     Indication: PRODUCT USED FOR UNKNOWN INDICATION
     Dosage: 210 MILLIGRAMS, IN TOTAL
     Route: 048
     Dates: start: 20200817, end: 20200817
  5. MODOPAR L.P. 125 100 MG/25 MG, GELULE A LIBERATION PROLONGEE [Concomitant]
     Active Substance: BENSERAZIDE HYDROCHLORIDE\LEVODOPA
     Indication: PRODUCT USED FOR UNKNOWN INDICATION
     Dosage: 7 DOSAGE FORM, IN TOTAL
     Route: 048
     Dates: start: 20200817, end: 20200817
  6. MODOPAR [Concomitant]
     Active Substance: BENSERAZIDE HYDROCHLORIDE\LEVODOPA
     Indication: PRODUCT USED FOR UNKNOWN INDICATION
     Dosage: 21 DOSAGE FORMS, IN TOTAL
     Route: 048
     Dates: start: 20200817, end: 20200817
  7. IMOVANE [Concomitant]
     Active Substance: ZOPICLONE
     Indication: PRODUCT USED FOR UNKNOWN INDICATION
     Dosage: 52.5 MILLIGRAMS, IN TOTAL
     Route: 048
     Dates: start: 20200817, end: 20200817
  8. METFORMIN [Suspect]
     Active Substance: METFORMIN HYDROCHLORIDE
     Indication: PRODUCT USED FOR UNKNOWN INDICATION
     Dosage: 11.9 GRAMS, IN TOTAL
     Route: 048
     Dates: start: 20200817, end: 20200817
  9. ELIQUIS [Concomitant]
     Active Substance: APIXABAN
     Indication: PRODUCT USED FOR UNKNOWN INDICATION
     Dosage: IN TOTAL
     Route: 048
     Dates: start: 20200817, end: 20200817

REACTIONS (3)
  - Lactic acidosis [Recovered/Resolved]
  - Suicide attempt [Unknown]
  - Poisoning deliberate [Recovered/Resolved]

NARRATIVE: CASE EVENT DATE: 20200817
